FAERS Safety Report 25024080 (Version 2)
Quarter: 2025Q1

REPORT INFORMATION
  Report Type: Report from Study
  Country: US (occurrence: US)
  Receive Date: 20250228
  Receipt Date: 20250305
  Transmission Date: 20250409
  Serious: Yes (Life-Threatening, Hospitalization, Other)
  Sender: NOVARTIS
  Company Number: US-002147023-NVSC2025US033761

PATIENT
  Sex: Female

DRUGS (1)
  1. COSENTYX [Suspect]
     Active Substance: SECUKINUMAB
     Indication: Product used for unknown indication
     Route: 058

REACTIONS (8)
  - COVID-19 [Unknown]
  - Influenza [Unknown]
  - Streptobacillus infection [Unknown]
  - Cardiac disorder [Unknown]
  - Concussion [Unknown]
  - Loss of consciousness [Unknown]
  - Needle issue [Unknown]
  - Device leakage [Unknown]
